FAERS Safety Report 6807273-6 (Version None)
Quarter: 2010Q2

REPORT INFORMATION
  Report Type: 
  Country: None (occurrence: None)
  Receive Date: 20100629
  Receipt Date: 20080801
  Transmission Date: 20101027
  Serious: No
  Sender: FDA-Public Use
  Company Number: US-PFIZER INC-2008063695

PATIENT
  Age: 8 Year
  Sex: Male

DRUGS (2)
  1. ZYVOX [Suspect]
     Indication: STAPHYLOCOCCAL INFECTION
  2. ZYVOX [Suspect]
     Indication: OSTEOMYELITIS

REACTIONS (1)
  - DRUG INEFFECTIVE [None]
